FAERS Safety Report 8240923-9 (Version None)
Quarter: 2012Q1

REPORT INFORMATION
  Report Type: 
  Country: None (occurrence: None)
  Receive Date: 20120328
  Receipt Date: 20120316
  Transmission Date: 20120608
  Serious: No
  Sender: FDA-Public Use
  Company Number: US-B.I. PHARMACEUTICALS,INC./RIDGEFIELD-2012-BP-05120BP

PATIENT
  Sex: Female

DRUGS (5)
  1. PRADAXA [Suspect]
     Indication: ATRIAL FIBRILLATION
     Dosage: 150 MG
     Route: 048
     Dates: start: 20120101
  2. LASIX [Concomitant]
     Dosage: 40 MG
     Route: 048
  3. LOSARTAN POTASSIUM [Concomitant]
     Dosage: 50 MG
     Route: 048
  4. KLOR-CON [Concomitant]
     Dosage: 10 MEQ
     Route: 048
  5. METOPROLOL SUCCINATE [Concomitant]
     Dosage: 100 MG
     Route: 048

REACTIONS (4)
  - DYSPNOEA [None]
  - OEDEMA PERIPHERAL [None]
  - INCORRECT DOSE ADMINISTERED [None]
  - SKIN ULCER [None]
